FAERS Safety Report 4973767-1 (Version None)
Quarter: 2006Q2

REPORT INFORMATION
  Report Type: 
  Country: None (occurrence: None)
  Receive Date: 20060414
  Receipt Date: 20041230
  Transmission Date: 20061013
  Serious: Yes (Hospitalization)
  Sender: FDA-Public Use
  Company Number: US-MERCK-0501USA00015

PATIENT
  Age: 54 Year
  Sex: Female
  Weight: 91 kg

DRUGS (3)
  1. VIOXX [Suspect]
     Indication: PAIN
     Route: 048
     Dates: start: 20010901, end: 20041101
  2. NORVASC [Concomitant]
     Route: 065
  3. PROTONIX [Concomitant]
     Route: 065

REACTIONS (40)
  - ABDOMINAL PAIN [None]
  - ACUTE MYOCARDIAL INFARCTION [None]
  - ASTHMA [None]
  - BACK PAIN [None]
  - BREAST PAIN [None]
  - BRONCHIAL HYPERACTIVITY [None]
  - BRONCHITIS [None]
  - CARDIAC DISORDER [None]
  - CARDIAC FAILURE CONGESTIVE [None]
  - CHEST PAIN [None]
  - CONTUSION [None]
  - CORONARY ARTERY DISEASE [None]
  - COUGH [None]
  - DIABETES MELLITUS NON-INSULIN-DEPENDENT [None]
  - DIVERTICULUM [None]
  - DIZZINESS [None]
  - DYSPNOEA [None]
  - DYSPNOEA EXERTIONAL [None]
  - FALL [None]
  - GASTROENTERITIS [None]
  - HAEMATOMA [None]
  - HERPES ZOSTER [None]
  - HYPERTENSION [None]
  - INCONTINENCE [None]
  - INTERMITTENT CLAUDICATION [None]
  - LOSS OF CONSCIOUSNESS [None]
  - MUSCLE HAEMORRHAGE [None]
  - MYOCARDIAL ISCHAEMIA [None]
  - NOCTURIA [None]
  - NON-CARDIAC CHEST PAIN [None]
  - OEDEMA [None]
  - OVERDOSE [None]
  - PAIN [None]
  - PAIN IN EXTREMITY [None]
  - PNEUMONIA [None]
  - STRESS INCONTINENCE [None]
  - SYNCOPE [None]
  - URINARY TRACT INFECTION [None]
  - VERTEBRAL ARTERY STENOSIS [None]
  - VULVOVAGINAL MYCOTIC INFECTION [None]
